FAERS Safety Report 17210597 (Version 2)
Quarter: 2020Q1

REPORT INFORMATION
  Report Type: Report from Study
  Country: GB (occurrence: GB)
  Receive Date: 20191227
  Receipt Date: 20200219
  Transmission Date: 20200409
  Serious: Yes (Other)
  Sender: FDA-Public Use
  Company Number: GB-BAUSCH-BL-2019-065677

PATIENT
  Sex: Male

DRUGS (4)
  1. METFORMIN [Suspect]
     Active Substance: METFORMIN HYDROCHLORIDE
     Dosage: 2 X 500MG
     Route: 065
  2. NOVOMIX 30 [Concomitant]
     Active Substance: INSULIN ASPART
     Indication: PRODUCT USED FOR UNKNOWN INDICATION
     Route: 065
  3. METFORMIN [Suspect]
     Active Substance: METFORMIN HYDROCHLORIDE
     Indication: PRODUCT USED FOR UNKNOWN INDICATION
     Route: 065
  4. SANDOSTATIN LAR DEPOT [Suspect]
     Active Substance: OCTREOTIDE ACETATE
     Indication: NEUROENDOCRINE TUMOUR
     Dosage: QMO (EVERY 4 WEEKS)
     Route: 030

REACTIONS (23)
  - Deafness unilateral [Unknown]
  - Steatorrhoea [Unknown]
  - Synovial cyst [Unknown]
  - Sensory loss [Unknown]
  - Rhinitis [Unknown]
  - Rhinorrhoea [Unknown]
  - Bursitis [Unknown]
  - Depressed mood [Unknown]
  - Oropharyngeal pain [Unknown]
  - Nasopharyngitis [Unknown]
  - Concomitant disease aggravated [Unknown]
  - Nerve compression [Unknown]
  - Neuralgia [Unknown]
  - Anger [Unknown]
  - Neck pain [Not Recovered/Not Resolved]
  - Blood glucose fluctuation [Unknown]
  - Pain [Unknown]
  - Abdominal pain [Unknown]
  - Pain in extremity [Not Recovered/Not Resolved]
  - Oral mucosal eruption [Unknown]
  - Intervertebral disc protrusion [Unknown]
  - Diarrhoea [Unknown]
  - Nausea [Recovered/Resolved]
